FAERS Safety Report 14499256 (Version 1)
Quarter: 2018Q1

REPORT INFORMATION
  Report Type: Spontaneous
  Country: US (occurrence: US)
  Receive Date: 20180207
  Receipt Date: 20180207
  Transmission Date: 20180509
  Serious: No
  Sender: FDA-Public Use
  Company Number: US-JAZZ-2017-US-010899

PATIENT
  Age: 46 Year
  Sex: Male

DRUGS (9)
  1. PRIALT [Suspect]
     Active Substance: ZICONOTIDE ACETATE
     Dosage: .103?G, QH
     Route: 037
     Dates: start: 20150310
  2. CLONIDINE. [Suspect]
     Active Substance: CLONIDINE
     Indication: PRODUCT USED FOR UNKNOWN INDICATION
     Dosage: 17.67?G, QH
     Route: 037
     Dates: start: 20150310
  3. PRIALT [Suspect]
     Active Substance: ZICONOTIDE ACETATE
     Dosage: .125?G, QH
     Route: 037
     Dates: start: 20150409, end: 20150506
  4. SUFENTA [Suspect]
     Active Substance: SUFENTANIL CITRATE
     Indication: PRODUCT USED FOR UNKNOWN INDICATION
     Dosage: 8.53?G, QH
     Route: 037
     Dates: start: 20150310
  5. CLONIDINE. [Suspect]
     Active Substance: CLONIDINE
     Dosage: 14.55?G, QH
     Route: 037
     Dates: start: 20150409
  6. PRIALT [Suspect]
     Active Substance: ZICONOTIDE ACETATE
     Indication: PRODUCT USED FOR UNKNOWN INDICATION
     Dosage: UNK ?G, QH
     Route: 037
     Dates: start: 20141119
  7. BUPIVICAINE [Suspect]
     Active Substance: BUPIVACAINE
     Indication: PRODUCT USED FOR UNKNOWN INDICATION
     Dosage: .536?G, QH
     Route: 048
     Dates: start: 20150310
  8. BUPIVICAINE [Suspect]
     Active Substance: BUPIVACAINE
     Dosage: 0.536 MG, QH
     Route: 037
     Dates: start: 20150409
  9. SUFENTA [Suspect]
     Active Substance: SUFENTANIL CITRATE
     Dosage: 8.53?G, QH
     Route: 037
     Dates: start: 20150409

REACTIONS (7)
  - Feeling hot [Recovered/Resolved]
  - Confusional state [Recovered/Resolved]
  - Hallucination, auditory [Recovering/Resolving]
  - Vision blurred [Recovered/Resolved]
  - Hypoaesthesia [Recovered/Resolved]
  - Diplopia [Recovered/Resolved]
  - Paraesthesia [Recovered/Resolved]

NARRATIVE: CASE EVENT DATE: 20150430
